FAERS Safety Report 6733354-1 (Version None)
Quarter: 2010Q2

REPORT INFORMATION
  Report Type: 
  Country: None (occurrence: None)
  Receive Date: 20100520
  Receipt Date: 20100511
  Transmission Date: 20101027
  Serious: Yes (Other)
  Sender: FDA-Public Use
  Company Number: US-PFIZER INC-2010060094

PATIENT
  Sex: Male

DRUGS (2)
  1. GEODON [Suspect]
     Dosage: UNK
  2. LEVODOPA [Interacting]
     Dosage: UNK

REACTIONS (2)
  - DRUG INTERACTION [None]
  - TREMOR [None]
